FAERS Safety Report 8141219-6 (Version None)
Quarter: 2012Q1

REPORT INFORMATION
  Report Type: 
  Country: None (occurrence: None)
  Receive Date: 20120216
  Receipt Date: 20120201
  Transmission Date: 20120608
  Serious: Yes (Hospitalization)
  Sender: FDA-Public Use
  Company Number: JP-AMGEN-US336542

PATIENT
  Age: 78 Year
  Sex: Female
  Weight: 43 kg

DRUGS (9)
  1. METHOTREXATE [Suspect]
     Dosage: UNK
     Route: 048
     Dates: start: 19990817, end: 20090126
  2. IANSOPRAZOLE [Concomitant]
     Dosage: 15 MG, QD
     Route: 048
     Dates: start: 20040325
  3. ASPIRIN [Concomitant]
     Dosage: UNK
     Route: 065
     Dates: end: 20090101
  4. LIPITOR [Concomitant]
     Dosage: 10 MG, QD
     Route: 048
  5. ENBREL [Suspect]
     Indication: RHEUMATOID ARTHRITIS
     Dosage: 25 MG, QWK
     Route: 058
     Dates: start: 20080414, end: 20090119
  6. PREDNISOLONE [Suspect]
     Dosage: 1 MG, QD
     Route: 048
     Dates: start: 19970425
  7. NORVASC [Concomitant]
     Dosage: 8 MG, QWK
     Route: 048
  8. CALCITRIOL [Concomitant]
     Dosage: .5 MUG, QD
     Route: 048
     Dates: start: 19990817
  9. CANDESARTAN CILEXETIL [Concomitant]
     Dosage: 8 MG, QD
     Route: 048

REACTIONS (3)
  - ARTHRALGIA [None]
  - EOSINOPHILIC PNEUMONIA [None]
  - HYPERSENSITIVITY [None]
